FAERS Safety Report 4948966-5 (Version None)
Quarter: 2006Q1

REPORT INFORMATION
  Report Type: 
  Country: None (occurrence: None)
  Receive Date: 20060321
  Receipt Date: 20060314
  Transmission Date: 20060701
  Serious: Yes (Death, Life-Threatening, Hospitalization)
  Sender: FDA-Public Use
  Company Number: ES-AVENTIS-200612486GDDC

PATIENT
  Age: 75 Year
  Sex: Male
  Weight: 54 kg

DRUGS (3)
  1. TAXOTERE [Suspect]
     Indication: LIP AND/OR ORAL CAVITY CANCER
     Route: 042
     Dates: start: 20060227, end: 20060305
  2. CISPLATIN [Suspect]
     Indication: LIP AND/OR ORAL CAVITY CANCER
     Route: 042
     Dates: start: 20060227, end: 20060305
  3. FLUOROURACIL [Suspect]
     Indication: LIP AND/OR ORAL CAVITY CANCER
     Route: 042
     Dates: start: 20060227, end: 20060305

REACTIONS (10)
  - AGITATION [None]
  - DIARRHOEA [None]
  - DISORIENTATION [None]
  - HYPOTENSION [None]
  - HYPOXIA [None]
  - OLIGURIA [None]
  - PNEUMONIA ASPIRATION [None]
  - RENAL FAILURE [None]
  - SHOCK [None]
  - THERAPY NON-RESPONDER [None]
